FAERS Safety Report 17575263 (Version 1)
Quarter: 2020Q1

REPORT INFORMATION
  Report Type: Spontaneous
  Country: CZ (occurrence: CZ)
  Receive Date: 20200324
  Receipt Date: 20200324
  Transmission Date: 20200409
  Serious: Yes (Hospitalization)
  Sender: FDA-Public Use
  Company Number: NVSC2020CZ080457

PATIENT
  Age: 72 Year
  Sex: Female

DRUGS (5)
  1. DOXYHEXAL [Suspect]
     Active Substance: DOXYCYCLINE
     Dosage: 100 MG, QD
     Route: 065
  2. MAXITROL [Suspect]
     Active Substance: DEXAMETHASONE\NEOMYCIN SULFATE\POLYMYXIN B SULFATE
     Indication: KERATITIS
     Dosage: DROPS EVERY 2H
     Route: 065
  3. DOXYHEXAL [Suspect]
     Active Substance: DOXYCYCLINE
     Indication: KERATITIS
     Dosage: 200 MG, QD
     Route: 065
  4. BETADINE [Concomitant]
     Active Substance: POVIDONE-IODINE
     Indication: PRODUCT USED FOR UNKNOWN INDICATION
     Dosage: 5 %
     Route: 065
  5. XALACOM [Concomitant]
     Active Substance: LATANOPROST\TIMOLOL MALEATE
     Indication: PRODUCT USED FOR UNKNOWN INDICATION
     Dosage: DROPS
     Route: 065

REACTIONS (3)
  - Open angle glaucoma [Unknown]
  - Intraocular pressure increased [Recovering/Resolving]
  - Product use in unapproved indication [Unknown]
